FAERS Safety Report 7525712-2 (Version None)
Quarter: 2011Q2

REPORT INFORMATION
  Report Type: 
  Country: None (occurrence: None)
  Receive Date: 20110606
  Receipt Date: 20110527
  Transmission Date: 20111010
  Serious: Yes (Death)
  Sender: FDA-Public Use
  Company Number: PHHY2011US25145

PATIENT
  Sex: Female

DRUGS (2)
  1. ZOMETA [Suspect]
     Dosage: 4 MG, UNK
     Dates: start: 20110114
  2. ZOMETA [Suspect]
     Dosage: 4 MG, UNK

REACTIONS (1)
  - BREAST CANCER METASTATIC [None]
